FAERS Safety Report 25075982 (Version 1)
Quarter: 2025Q1

REPORT INFORMATION
  Report Type: Spontaneous
  Country: IT (occurrence: IT)
  Receive Date: 20250313
  Receipt Date: 20250313
  Transmission Date: 20250408
  Serious: Yes (Hospitalization, Other)
  Sender: MERCK SHARP & DOHME LLC
  Company Number: None

PATIENT
  Age: 73 Year
  Sex: Female
  Weight: 51 kg

DRUGS (2)
  1. KEYTRUDA [Suspect]
     Active Substance: PEMBROLIZUMAB
     Indication: Papillary serous endometrial carcinoma
     Route: 042
     Dates: start: 20240830, end: 20241217
  2. LENVATINIB MESYLATE [Suspect]
     Active Substance: LENVATINIB MESYLATE
     Indication: Papillary serous endometrial carcinoma
     Route: 048
     Dates: start: 20240830, end: 20250104

REACTIONS (1)
  - Gallbladder fistula [Recovered/Resolved]

NARRATIVE: CASE EVENT DATE: 20250113
